FAERS Safety Report 12580292 (Version 1)
Quarter: 2016Q3

REPORT INFORMATION
  Report Type: Spontaneous
  Country: US (occurrence: US)
  Receive Date: 20160721
  Receipt Date: 20160721
  Transmission Date: 20161109
  Serious: No
  Sender: FDA-Public Use
  Company Number: US-SEPTODONT-201502903

PATIENT
  Sex: Male

DRUGS (1)
  1. LIDOCAINE OINTMENT USP, 5% NOVOCOL INC [Suspect]
     Active Substance: LIDOCAINE
     Indication: LOCAL ANAESTHESIA
     Dosage: 2 - 3 TIMES A DAY
     Route: 061
     Dates: start: 20150531

REACTIONS (1)
  - Drug ineffective [Unknown]

NARRATIVE: CASE EVENT DATE: 20150604
